FAERS Safety Report 16916879 (Version 1)
Quarter: 2019Q4

REPORT INFORMATION
  Report Type: Spontaneous
  Country: GB (occurrence: GB)
  Receive Date: 20191015
  Receipt Date: 20191015
  Transmission Date: 20200122
  Serious: Yes (Death, Other)
  Sender: FDA-Public Use
  Company Number: GB-AUROBINDO-AUR-APL-2012-02496

PATIENT
  Age: 17 Year
  Sex: Male

DRUGS (5)
  1. ROACCUTANE [Suspect]
     Active Substance: ISOTRETINOIN
     Indication: ACNE
     Dosage: 80 MG,ONCE A DAY,
     Route: 048
     Dates: start: 201005
  2. PARACETAMOL 500 MG SOLUBLE TABLETS (GSL) [Suspect]
     Active Substance: ACETAMINOPHEN
     Dosage: 2 DOSAGE FORM
     Route: 048
  3. CHLORPHENAMINE [Suspect]
     Active Substance: CHLORPHENIRAMINE MALEATE
     Dosage: 21 DOSAGE FORM
     Route: 048
  4. PARACETAMOL 500 MG SOLUBLE TABLETS (GSL) [Suspect]
     Active Substance: ACETAMINOPHEN
     Indication: PRODUCT USED FOR UNKNOWN INDICATION
     Dosage: UNK
     Route: 065
  5. CHLORPHENAMINE [Suspect]
     Active Substance: CHLORPHENIRAMINE MALEATE
     Indication: PRODUCT USED FOR UNKNOWN INDICATION
     Dosage: UNK
     Route: 065

REACTIONS (17)
  - Depression [Unknown]
  - Erythema [Unknown]
  - Aggression [Unknown]
  - Gastric infection [Unknown]
  - Personality change [Unknown]
  - Scar [Unknown]
  - Dry skin [Unknown]
  - Completed suicide [Fatal]
  - Ingrowing nail [Unknown]
  - Overdose [Unknown]
  - Lip dry [Unknown]
  - Psychiatric symptom [Unknown]
  - Suicidal ideation [Unknown]
  - Pain in extremity [Unknown]
  - Suicide attempt [Recovered/Resolved]
  - Localised infection [Unknown]
  - Oropharyngeal pain [Unknown]

NARRATIVE: CASE EVENT DATE: 20110108
